FAERS Safety Report 23570791 (Version 2)
Quarter: 2025Q1

REPORT INFORMATION
  Report Type: Spontaneous
  Country: US (occurrence: US)
  Receive Date: 20240227
  Receipt Date: 20250121
  Transmission Date: 20250408
  Serious: Yes (Other)
  Sender: ALCON
  Company Number: US-ALCON LABORATORIES-ALC2024US001183

PATIENT
  Age: 46 Year
  Sex: Female

DRUGS (8)
  1. APRACLONIDINE [Suspect]
     Active Substance: APRACLONIDINE HYDROCHLORIDE
     Indication: Ocular hypertension
     Route: 047
  2. BRIMONIDINE [Suspect]
     Active Substance: BRIMONIDINE TARTRATE
     Indication: Ocular hypertension
     Route: 047
  3. BRIMONIDINE TARTRATE\TIMOLOL MALEATE [Suspect]
     Active Substance: BRIMONIDINE TARTRATE\TIMOLOL MALEATE
     Indication: Ocular hypertension
     Route: 047
  4. DORZOLAMIDE\TIMOLOL [Suspect]
     Active Substance: DORZOLAMIDE\TIMOLOL
     Indication: Ocular hypertension
     Route: 047
  5. NETARSUDIL [Suspect]
     Active Substance: NETARSUDIL
     Indication: Ocular hypertension
     Route: 047
  6. TRAVOPROST [Suspect]
     Active Substance: TRAVOPROST
     Indication: Ocular hypertension
     Route: 047
  7. CYCLOPENTOLATE [Concomitant]
     Active Substance: CYCLOPENTOLATE
     Indication: Iridocyclitis
     Route: 065
  8. PREDNISOLONE ACETATE [Concomitant]
     Active Substance: PREDNISOLONE ACETATE
     Indication: Iridocyclitis
     Route: 065

REACTIONS (1)
  - Corneal degeneration [Recovered/Resolved]
